FAERS Safety Report 5056263-5 (Version None)
Quarter: 2006Q3

REPORT INFORMATION
  Report Type: 
  Country: None (occurrence: None)
  Receive Date: 20060717
  Receipt Date: 20060707
  Transmission Date: 20061208
  Serious: Yes (Hospitalization)
  Sender: FDA-Public Use
  Company Number: 2006-07-0176

PATIENT
  Sex: Male

DRUGS (3)
  1. TEMODAL [Suspect]
     Indication: GLIOBLASTOMA MULTIFORME
     Dosage: 100 MG OD ORAL
     Route: 048
     Dates: start: 20060406, end: 20060517
  2. DIFLUCAN [Suspect]
     Indication: ORAL CANDIDIASIS
     Dosage: 50MG OD ORAL
     Route: 048
     Dates: start: 20060515, end: 20060519
  3. RADIATION THERAPY [Concomitant]

REACTIONS (3)
  - CHOLESTASIS [None]
  - HEPATOCELLULAR DAMAGE [None]
  - ORAL CANDIDIASIS [None]
